FAERS Safety Report 7238581-5 (Version None)
Quarter: 2011Q1

REPORT INFORMATION
  Report Type: 
  Country: None (occurrence: None)
  Receive Date: 20110121
  Receipt Date: 20110119
  Transmission Date: 20110831
  Serious: Yes (Life-Threatening, Hospitalization)
  Sender: FDA-Public Use
  Company Number: GB-JNJFOC-20110104916

PATIENT
  Age: 94 Year
  Sex: Female

DRUGS (2)
  1. LEVOFLOXACIN [Suspect]
     Indication: PNEUMONIA
     Route: 042
  2. THEOPHYLLINE [Interacting]
     Indication: ILL-DEFINED DISORDER
     Route: 042

REACTIONS (2)
  - STATUS EPILEPTICUS [None]
  - DRUG INTERACTION [None]
